FAERS Safety Report 5652621-6 (Version None)
Quarter: 2008Q1

REPORT INFORMATION
  Report Type: 
  Country: None (occurrence: None)
  Receive Date: 20080131
  Receipt Date: 20071005
  Transmission Date: 20080703
  Serious: No
  Sender: FDA-Public Use
  Company Number: US200710001995

PATIENT
  Age: 69 Year
  Sex: Female
  Weight: 102 kg

DRUGS (3)
  1. BYETTA [Suspect]
     Indication: TYPE 2 DIABETES MELLITUS
     Dosage: 10 UG, 2/D, SUBCUTANEOUS ; 30 UG, SUBCUTANEOUS
     Route: 058
     Dates: start: 20071005, end: 20071005
  2. BYETTA [Suspect]
     Indication: TYPE 2 DIABETES MELLITUS
     Dosage: 10 UG, 2/D, SUBCUTANEOUS ; 30 UG, SUBCUTANEOUS
     Route: 058
     Dates: start: 20070901
  3. AVANDIA [Concomitant]

REACTIONS (6)
  - ACCIDENTAL OVERDOSE [None]
  - BLOOD GLUCOSE DECREASED [None]
  - INCORRECT DOSE ADMINISTERED [None]
  - PARAESTHESIA [None]
  - VOMITING [None]
  - WEIGHT DECREASED [None]
